FAERS Safety Report 5939882-0 (Version None)
Quarter: 2008Q4

REPORT INFORMATION
  Report Type: 
  Country: None (occurrence: None)
  Receive Date: 20081104
  Receipt Date: 20081028
  Transmission Date: 20090506
  Serious: Yes (Hospitalization)
  Sender: FDA-Public Use
  Company Number: FR-BRISTOL-MYERS SQUIBB COMPANY-14356265

PATIENT
  Age: 55 Year
  Sex: Female

DRUGS (2)
  1. ABILIFY [Suspect]
     Indication: SCHIZOPHRENIA
     Dosage: INCREASED ON 18SEP08 TO 40MG/D, THEN REDUCED ON 23SEP08 TO 30MG/D
  2. TRILEPTAL [Suspect]

REACTIONS (7)
  - AGITATION [None]
  - CONFUSIONAL STATE [None]
  - DELIRIUM [None]
  - DISSOCIATION [None]
  - HYPONATRAEMIA [None]
  - MENTAL IMPAIRMENT [None]
  - OVERDOSE [None]
